FAERS Safety Report 7114443-9 (Version None)
Quarter: 2010Q4

REPORT INFORMATION
  Report Type: 
  Country: None (occurrence: None)
  Receive Date: 20101119
  Receipt Date: 20101105
  Transmission Date: 20110411
  Serious: Yes (Hospitalization, Disabling, Other)
  Sender: FDA-Public Use
  Company Number: US-ELI_LILLY_AND_COMPANY-US201011001915

PATIENT
  Age: 41 Year
  Sex: Female

DRUGS (10)
  1. CYMBALTA [Suspect]
     Indication: DEPRESSION
     Dosage: 30 MG, UNK
     Dates: start: 20080101
  2. CYMBALTA [Suspect]
     Dosage: 30 MG, DAILY (1/D)
  3. BACTRIM DS [Concomitant]
  4. DILAUDID [Concomitant]
  5. METHADONE HCL [Concomitant]
  6. FLEXERIL [Concomitant]
  7. AMBIEN [Concomitant]
  8. ATIVAN [Concomitant]
  9. CALCIUM [Concomitant]
  10. MULTI-VITAMIN [Concomitant]

REACTIONS (7)
  - AFFECT LABILITY [None]
  - CONFUSIONAL STATE [None]
  - CRYING [None]
  - INFECTION [None]
  - PAIN [None]
  - SPINAL CORD OPERATION [None]
  - WITHDRAWAL SYNDROME [None]
